FAERS Safety Report 8275817-6 (Version None)
Quarter: 2012Q2

REPORT INFORMATION
  Report Type: 
  Country: None (occurrence: None)
  Receive Date: 20120412
  Receipt Date: 20120124
  Transmission Date: 20120825
  Serious: No
  Sender: FDA-Public Use
  Company Number: US-TEVA-312323USA

PATIENT
  Sex: Female

DRUGS (1)
  1. TRIAMCINOLONE [Suspect]
     Indication: SINUS CONGESTION
     Dosage: .05 MILLIGRAM; ONE SPRAY EACH NOSTRIL ONCE PER DAY
     Route: 045
     Dates: start: 20111204

REACTIONS (9)
  - COUGH [None]
  - DEPRESSED MOOD [None]
  - MALAISE [None]
  - FEELING ABNORMAL [None]
  - INFLUENZA LIKE ILLNESS [None]
  - FATIGUE [None]
  - CHILLS [None]
  - PAIN [None]
  - ANXIETY [None]
